FAERS Safety Report 11807714 (Version 3)
Quarter: 2015Q4

REPORT INFORMATION
  Report Type: Spontaneous
  Country: JP (occurrence: JP)
  Receive Date: 20151207
  Receipt Date: 20151231
  Transmission Date: 20160305
  Serious: Yes (Hospitalization)
  Sender: FDA-Public Use
  Company Number: JP-BAYER-2015-476937

PATIENT
  Age: 72 Year
  Sex: Male

DRUGS (3)
  1. PLETAAL [Interacting]
     Active Substance: CILOSTAZOL
     Indication: PERIPHERAL ARTERIAL OCCLUSIVE DISEASE
     Route: 048
  2. BAYASPIRIN [Suspect]
     Active Substance: ASPIRIN
     Indication: PERIPHERAL ARTERIAL OCCLUSIVE DISEASE
     Dosage: UNK, QD
     Route: 048
  3. OPALMON [Interacting]
     Active Substance: LIMAPROST
     Indication: PERIPHERAL ARTERIAL OCCLUSIVE DISEASE
     Route: 048

REACTIONS (7)
  - Labelled drug-drug interaction medication error [None]
  - Blood pressure decreased [Recovered/Resolved]
  - Extravasation blood [Recovered/Resolved]
  - Tumour ulceration [Recovered/Resolved]
  - Haematemesis [Recovered/Resolved]
  - Tumour haemorrhage [Recovered/Resolved]
  - Shock [Recovered/Resolved]
